FAERS Safety Report 5949500-3 (Version None)
Quarter: 2008Q4

REPORT INFORMATION
  Report Type: 
  Country: None (occurrence: None)
  Receive Date: 20081112
  Receipt Date: 20081105
  Transmission Date: 20090506
  Serious: Yes (Death, Other)
  Sender: FDA-Public Use
  Company Number: PHHY2008NL27108

PATIENT
  Sex: Female

DRUGS (6)
  1. RASILEZ [Suspect]
     Indication: HYPERTENSION
     Dosage: 150 MG, QD
     Dates: start: 20080925
  2. LABETALOL HCL [Concomitant]
     Dosage: 200 MG, BID
     Dates: start: 20080901
  3. ASCAL CARDIO [Concomitant]
     Dosage: 100 MG, QD
     Dates: start: 20000101
  4. ATACAND PLUS [Concomitant]
     Dosage: 16/12.5MG/ 1DD1DF
  5. EZETROL [Concomitant]
     Dosage: 10 MG, QD
     Dates: start: 20080813
  6. METOPROLOL TARTRATE [Concomitant]

REACTIONS (4)
  - BLOOD CREATININE INCREASED [None]
  - FATIGUE [None]
  - HAEMOGLOBIN DECREASED [None]
  - SUDDEN CARDIAC DEATH [None]
